FAERS Safety Report 19806156 (Version 1)
Quarter: 2021Q3

REPORT INFORMATION
  Report Type: Spontaneous
  Country: US (occurrence: US)
  Receive Date: 20210908
  Receipt Date: 20210908
  Transmission Date: 20211014
  Serious: Yes (Other)
  Sender: FDA-Public Use
  Company Number: US-PFIZER INC-202101128060

PATIENT
  Age: 64 Year
  Sex: Female

DRUGS (1)
  1. XELJANZ [Suspect]
     Active Substance: TOFACITINIB CITRATE
     Dosage: 5 MG
     Dates: start: 20210716, end: 20210720

REACTIONS (7)
  - Nausea [Recovering/Resolving]
  - Stomatitis [Recovering/Resolving]
  - Feeding disorder [Recovering/Resolving]
  - Vision blurred [Recovering/Resolving]
  - Dysuria [Recovering/Resolving]
  - Headache [Recovering/Resolving]
  - Renal impairment [Recovering/Resolving]
